FAERS Safety Report 13909238 (Version 1)
Quarter: 2017Q3

REPORT INFORMATION
  Report Type: Spontaneous
  Country: US (occurrence: US)
  Receive Date: 20170828
  Receipt Date: 20170828
  Transmission Date: 20171127
  Serious: No
  Sender: FDA-Public Use
  Company Number: US-009507513-1708USA003206

PATIENT

DRUGS (2)
  1. PREGNYL [Suspect]
     Active Substance: CHORIOGONADOTROPIN ALFA
  2. STERILE DILUENT [Suspect]
     Active Substance: WATER
     Route: 030

REACTIONS (2)
  - Wrong drug administered [Unknown]
  - No adverse event [Unknown]
